FAERS Safety Report 6075013-7 (Version None)
Quarter: 2009Q1

REPORT INFORMATION
  Report Type: 
  Country: None (occurrence: None)
  Receive Date: 20090210
  Receipt Date: 20080507
  Transmission Date: 20090719
  Serious: No
  Sender: FDA-Public Use
  Company Number: 2008AL004128

PATIENT

DRUGS (3)
  1. DIGOXIN [Suspect]
     Indication: HEART RATE IRREGULAR
     Dosage: .125 MG PO DAILY
     Route: 048
  2. MICRONASE [Concomitant]
  3. COUMADIN [Concomitant]

REACTIONS (4)
  - ABASIA [None]
  - DYSPNOEA [None]
  - PAIN [None]
  - PRODUCT QUALITY ISSUE [None]
